FAERS Safety Report 13605155 (Version 1)
Quarter: 2017Q2

REPORT INFORMATION
  Report Type: Spontaneous
  Country: US (occurrence: US)
  Receive Date: 20170601
  Receipt Date: 20170601
  Transmission Date: 20170830
  Serious: Yes (Life-Threatening)
  Sender: FDA-Public Use
  Company Number: None

PATIENT
  Age: 82 Year
  Sex: Female
  Weight: 68.1 kg

DRUGS (26)
  1. CALCIUM CARBONATE. [Concomitant]
     Active Substance: CALCIUM CARBONATE
  2. CRANBERRY S GR [Concomitant]
  3. PREDNISONE 10MG [Suspect]
     Active Substance: PREDNISONE
     Indication: DYSPNOEA
     Dosage: 4 TABS EACH DAY X3 DAYS; 3 TABS X3 DAYS; 2 TABS X2 DAYS; 1 TAB X2DAYS
     Route: 048
     Dates: start: 20170317, end: 20170327
  4. SYMBICORT [Suspect]
     Active Substance: BUDESONIDE\FORMOTEROL FUMARATE DIHYDRATE
     Indication: ASTHMA
     Dosage: 160/45 2 PUFFS 2X A DAY
     Route: 055
     Dates: start: 20170418, end: 20170420
  5. COQ10 [Concomitant]
     Active Substance: UBIDECARENONE
  6. EXFORGE [Concomitant]
     Active Substance: AMLODIPINE BESYLATE\VALSARTAN
  7. ALPRAZALAN [Concomitant]
  8. VITAMIN B COMPLEX [Concomitant]
     Active Substance: CYANOCOBALAMIN\DEXPANTHENOL\NIACINAMIDE\PYRIDOXINE HYDROCHLORIDE\RIBOFLAVIN 5^-PHOSPHATE SODIUM\THIAMINE HYDROCHLORIDE\VITAMIN B COMPLEX
  9. L TAURINE [Concomitant]
  10. TART CHERRY [Concomitant]
  11. CHANCA PIEDRA [Concomitant]
  12. WARFEIN [Concomitant]
  13. VITAMIN D3 [Concomitant]
     Active Substance: CHOLECALCIFEROL
  14. RED YEAST RICE [Concomitant]
     Active Substance: DIETARY SUPPLEMENT
  15. HYDRALAZINE [Concomitant]
     Active Substance: HYDRALAZINE HYDROCHLORIDE
  16. FLAXSEED [Concomitant]
     Active Substance: FLAX SEED
  17. NETTLE LEAF [Concomitant]
  18. BOSWELLIA [Concomitant]
  19. VITAMIN B-1 (THIAMINE) [Concomitant]
  20. FISH OIL [Concomitant]
     Active Substance: FISH OIL
  21. VITAMIN E [Concomitant]
     Active Substance: .ALPHA.-TOCOPHEROL
  22. ALBUTEROL SULFATE INH SOLN [Suspect]
     Active Substance: ALBUTEROL SULFATE
     Indication: DYSPNOEA
     Dosage: 0:083% 25MG/3ML INH INTO THE LUNGS AS NEEDED EVERY 4 HOURS
     Route: 055
     Dates: start: 20170322, end: 20170324
  23. MAGNESIUM (OXIDE CITRATE, ASPERTATE) [Concomitant]
  24. L CARNITINE [Concomitant]
     Active Substance: LEVOCARNITINE
  25. LASIX [Concomitant]
     Active Substance: FUROSEMIDE
  26. HAWTHORNBERRIES [Concomitant]

REACTIONS (14)
  - Nasal congestion [None]
  - Cough [None]
  - Sinusitis [None]
  - Flatulence [None]
  - Abdominal distension [None]
  - Feeling jittery [None]
  - Dyspnoea [None]
  - Pain [None]
  - Throat irritation [None]
  - Back pain [None]
  - Pelvic pain [None]
  - Fatigue [None]
  - Pulmonary function test abnormal [None]
  - Secretion discharge [None]

NARRATIVE: CASE EVENT DATE: 20170317
